FAERS Safety Report 14837997 (Version 5)
Quarter: 2018Q2

REPORT INFORMATION
  Report Type: Report from Study
  Country: US (occurrence: US)
  Receive Date: 20180502
  Receipt Date: 20180615
  Transmission Date: 20180711
  Serious: Yes (Hospitalization)
  Sender: FDA-Public Use
  Company Number: US-SA-2018SA028106

PATIENT
  Age: 62 Year
  Sex: Female
  Weight: 55.4 kg

DRUGS (14)
  1. FLUTICASONE. [Concomitant]
     Active Substance: FLUTICASONE
     Indication: SEASONAL ALLERGY
     Dosage: UNK UNK,UNK
     Route: 045
     Dates: start: 201704
  2. UREA. [Concomitant]
     Active Substance: UREA
     Dosage: 1 DF,PRN
     Route: 061
     Dates: start: 20170629
  3. FLUTICASONE. [Concomitant]
     Active Substance: FLUTICASONE
     Dosage: UNK UNK,PRN
     Route: 045
     Dates: start: 20160623
  4. LORATADINE. [Concomitant]
     Active Substance: LORATADINE
     Indication: SINUS CONGESTION
     Dosage: 10 MG,QD
     Route: 048
     Dates: start: 201704
  5. IBUPROFEN. [Concomitant]
     Active Substance: IBUPROFEN
     Indication: MUSCULAR WEAKNESS
     Dosage: 1 DF,UNK
     Route: 048
     Dates: start: 199508
  6. BENADRYL [Concomitant]
     Active Substance: DIPHENHYDRAMINE HYDROCHLORIDE
     Dosage: UNK UNK,UNK
     Route: 042
     Dates: start: 20180508, end: 20180508
  7. SOLU-MEDROL [Concomitant]
     Active Substance: METHYLPREDNISOLONE SODIUM SUCCINATE
     Dosage: UNK UNK,UNK
     Route: 042
     Dates: start: 20180508, end: 20180508
  8. UREA. [Concomitant]
     Active Substance: UREA
     Indication: SEBORRHOEIC KERATOSIS
     Dosage: UNK UNK,PRN
     Route: 061
     Dates: start: 201709
  9. PARACETAMOL [Concomitant]
     Active Substance: ACETAMINOPHEN
     Dosage: UNK UNK,UNK
     Route: 048
     Dates: start: 20180508, end: 20180508
  10. ALGLUCOSIDASE ALFA [Suspect]
     Active Substance: ALGLUCOSIDASE ALFA
     Indication: GLYCOGEN STORAGE DISEASE TYPE II
     Dosage: UNK UNK,UNK
     Route: 041
     Dates: start: 20171206, end: 20180411
  11. LORATADINE. [Concomitant]
     Active Substance: LORATADINE
     Dosage: 10 MG,PRN
     Route: 048
     Dates: start: 20170605
  12. IBUPROFEN. [Concomitant]
     Active Substance: IBUPROFEN
     Indication: ARTHRALGIA
     Dosage: 200 MG,PRN
     Route: 048
     Dates: start: 2000
  13. PHENYLEPHRINE HYDROCHLORIDE. [Concomitant]
     Active Substance: PHENYLEPHRINE HYDROCHLORIDE
     Indication: SINUS CONGESTION
     Dosage: 30 MG,UNK
     Route: 048
     Dates: start: 201707
  14. SUDAFED COMPOUND [Concomitant]
     Indication: SINUS CONGESTION
     Dosage: 30 MG,PRN
     Route: 048
     Dates: start: 20170705

REACTIONS (5)
  - Dyspnoea [Recovered/Resolved]
  - Hot flush [Recovered/Resolved]
  - Hyperaemia [Recovered/Resolved]
  - Muscle spasms [Not Recovered/Not Resolved]
  - Dizziness [Recovered/Resolved]

NARRATIVE: CASE EVENT DATE: 20180104
